FAERS Safety Report 7921377-6 (Version None)
Quarter: 2011Q4

REPORT INFORMATION
  Report Type: 
  Country: None (occurrence: None)
  Receive Date: 20111117
  Receipt Date: 20111107
  Transmission Date: 20120403
  Serious: Yes (Other)
  Sender: FDA-Public Use
  Company Number: JP-ROCHE-1008931

PATIENT
  Age: 72 Year
  Sex: Female

DRUGS (4)
  1. RANIBIZUMAB [Suspect]
     Indication: POLYPOIDAL CHOROIDAL VASCULOPATHY
     Route: 050
     Dates: start: 20090301
  2. RANIBIZUMAB [Suspect]
     Dates: start: 20090701
  3. VERTEPORFIN [Suspect]
     Indication: POLYPOIDAL CHOROIDAL VASCULOPATHY
     Route: 042
     Dates: start: 20090301
  4. VERTEPORFIN [Suspect]
     Dates: start: 20090701

REACTIONS (2)
  - CHOROIDAL DYSTROPHY [None]
  - RETINAL DETACHMENT [None]
